FAERS Safety Report 22830578 (Version 2)
Quarter: 2024Q2

REPORT INFORMATION
  Report Type: Spontaneous
  Country: PL (occurrence: PL)
  Receive Date: 20230817
  Receipt Date: 20240611
  Transmission Date: 20240715
  Serious: Yes (Other)
  Sender: FDA-Public Use
  Company Number: PL-009507513-2308POL005052

PATIENT
  Age: 69 Year
  Sex: Male

DRUGS (8)
  1. PEMBROLIZUMAB [Suspect]
     Active Substance: PEMBROLIZUMAB
     Dosage: CYCLE 1
     Dates: start: 20221201
  2. METOPROLOL [Concomitant]
     Active Substance: METOPROLOL
  3. INDAPAMIDE [Concomitant]
     Active Substance: INDAPAMIDE
  4. ESOMEPRAZOLE [Concomitant]
     Active Substance: ESOMEPRAZOLE
  5. RAMIPRIL [Concomitant]
     Active Substance: RAMIPRIL
  6. ASPIRIN [Concomitant]
     Active Substance: ASPIRIN
  7. ATORVASTATIN [Concomitant]
     Active Substance: ATORVASTATIN
  8. BUPRENORPHINE [Concomitant]
     Active Substance: BUPRENORPHINE

REACTIONS (14)
  - Pulmonary toxicity [Unknown]
  - Pulmonary toxicity [Unknown]
  - Oropharyngeal fistula [Unknown]
  - Oronasal fistula [Unknown]
  - Thrombocytopenia [Unknown]
  - Neutropenia [Unknown]
  - Pneumonia [Unknown]
  - Adrenal insufficiency [Unknown]
  - Haematotoxicity [Recovered/Resolved]
  - Anisomastia [Unknown]
  - Chronic obstructive pulmonary disease [Unknown]
  - Dizziness postural [Unknown]
  - Lung opacity [Unknown]
  - Anaemia [Unknown]

NARRATIVE: CASE EVENT DATE: 20221222
